FAERS Safety Report 12479073 (Version 1)
Quarter: 2016Q2

REPORT INFORMATION
  Report Type: Spontaneous
  Country: PL (occurrence: PL)
  Receive Date: 20160620
  Receipt Date: 20160620
  Transmission Date: 20160815
  Serious: Yes (Other)
  Sender: FDA-Public Use
  Company Number: PL-ROCHE-1776764

PATIENT
  Age: 30 Year
  Sex: Male

DRUGS (2)
  1. PEGASYS [Suspect]
     Active Substance: PEGINTERFERON ALFA-2A
     Indication: ANTIVIRAL TREATMENT
     Route: 065
     Dates: start: 20141223, end: 201506
  2. RIBAVIRIN. [Suspect]
     Active Substance: RIBAVIRIN
     Indication: ANTIVIRAL TREATMENT
     Route: 065
     Dates: start: 20141223, end: 201506

REACTIONS (19)
  - Fatigue [Recovered/Resolved]
  - Myalgia [Recovered/Resolved]
  - Rash papular [Recovered/Resolved]
  - Body temperature increased [Recovered/Resolved]
  - Pruritus [Recovered/Resolved]
  - Platelet count decreased [Recovering/Resolving]
  - Glomerular filtration rate decreased [Unknown]
  - Asthenia [Recovered/Resolved]
  - Arthralgia [Recovered/Resolved]
  - Influenza like illness [Recovered/Resolved]
  - Back pain [Recovered/Resolved]
  - Somnolence [Recovered/Resolved]
  - White blood cell count decreased [Not Recovered/Not Resolved]
  - Neutrophil count decreased [Not Recovered/Not Resolved]
  - Headache [Recovered/Resolved]
  - Chills [Recovered/Resolved]
  - Blood uric acid increased [Recovering/Resolving]
  - Spinal pain [Recovered/Resolved]
  - Red blood cell count decreased [Unknown]

NARRATIVE: CASE EVENT DATE: 2015
